FAERS Safety Report 18222967 (Version 1)
Quarter: 2020Q3

REPORT INFORMATION
  Report Type: Spontaneous
  Country: GB (occurrence: GB)
  Receive Date: 20200902
  Receipt Date: 20200902
  Transmission Date: 20201103
  Serious: Yes (Hospitalization, Other)
  Sender: FDA-Public Use
  Company Number: GB-BIOVITRUM-2020GB4646

PATIENT
  Age: 22 Year
  Sex: Female

DRUGS (1)
  1. ORFADIN [Suspect]
     Active Substance: NITISINONE
     Indication: TYROSINAEMIA

REACTIONS (7)
  - Constipation [Unknown]
  - Abdominal pain lower [Unknown]
  - Hypertension [Unknown]
  - Faecaloma [Unknown]
  - Treatment noncompliance [Unknown]
  - Hypovolaemia [Unknown]
  - Vomiting [Unknown]
